FAERS Safety Report 5963297-2 (Version None)
Quarter: 2008Q4

REPORT INFORMATION
  Report Type: 
  Country: None (occurrence: None)
  Receive Date: 20081121
  Receipt Date: 20081121
  Transmission Date: 20090506
  Serious: No
  Sender: FDA-Public Use
  Company Number: None

PATIENT
  Sex: Female
  Weight: 58.9676 kg

DRUGS (1)
  1. LYRICA [Suspect]
     Indication: ARTHRITIS
     Dosage: 1 CAPSULE AT BEDTIME
     Dates: start: 20080115, end: 20080315

REACTIONS (3)
  - DISTURBANCE IN ATTENTION [None]
  - DYSARTHRIA [None]
  - MEMORY IMPAIRMENT [None]
